FAERS Safety Report 23591443 (Version 3)
Quarter: 2024Q4

REPORT INFORMATION
  Report Type: Spontaneous
  Country: US (occurrence: US)
  Receive Date: 20240304
  Receipt Date: 20241003
  Transmission Date: 20250115
  Serious: No
  Sender: LUNDBECK
  Company Number: US-LUNDBECK-DKLU3074688

PATIENT

DRUGS (2)
  1. VYEPTI [Suspect]
     Active Substance: EPTINEZUMAB-JJMR
     Indication: Product used for unknown indication
     Dosage: 100 MILLIGRAM
     Route: 041
  2. VYEPTI [Suspect]
     Active Substance: EPTINEZUMAB-JJMR
     Dosage: 300 MILLIGRAM
     Route: 041

REACTIONS (6)
  - Hypoaesthesia [Unknown]
  - Swelling face [Unknown]
  - Eye swelling [Unknown]
  - Infusion site swelling [Unknown]
  - Migraine [Unknown]
  - Hemiplegic migraine [Unknown]

NARRATIVE: CASE EVENT DATE: 20240801
